FAERS Safety Report 10092298 (Version 1)
Quarter: 2014Q2

REPORT INFORMATION
  Report Type: Spontaneous
  Country: US (occurrence: US)
  Receive Date: 20140421
  Receipt Date: 20140421
  Transmission Date: 20141212
  Serious: No
  Sender: FDA-Public Use
  Company Number: US-SANOFI-AVENTIS-2013SA049078

PATIENT
  Age: 15 Year
  Sex: Male
  Weight: 56.7 kg

DRUGS (3)
  1. ALLEGRA [Suspect]
     Indication: HYPERSENSITIVITY
     Route: 048
     Dates: start: 201303
  2. ALLEGRA [Suspect]
     Indication: HYPERSENSITIVITY
     Route: 048
  3. ABILIFY [Concomitant]
     Route: 065
     Dates: start: 201205

REACTIONS (2)
  - Urticaria [Recovered/Resolved]
  - Pruritus [Recovered/Resolved]
